FAERS Safety Report 17809559 (Version 1)
Quarter: 2020Q2

REPORT INFORMATION
  Report Type: Other
  Country: AU (occurrence: AU)
  Receive Date: 20200520
  Receipt Date: 20200520
  Transmission Date: 20200714
  Serious: No
  Sender: FDA-Public Use
  Company Number: AU-TOLMAR, INC.-19AU000230

PATIENT
  Age: 65 Year
  Sex: Male

DRUGS (1)
  1. ELIGARD [Suspect]
     Active Substance: LEUPROLIDE ACETATE
     Indication: PROSTATE CANCER
     Dosage: 22.5 MG, EVERY 3 MONTHS
     Route: 058
     Dates: start: 20180115

REACTIONS (2)
  - Intercepted product preparation error [Unknown]
  - Product quality issue [Unknown]

NARRATIVE: CASE EVENT DATE: 20190727
